FAERS Safety Report 11083099 (Version 3)
Quarter: 2015Q3

REPORT INFORMATION
  Report Type: Spontaneous
  Country: US (occurrence: US)
  Receive Date: 20150501
  Receipt Date: 20150915
  Transmission Date: 20151125
  Serious: Yes (Other)
  Sender: FDA-Public Use
  Company Number: US-INCYTE CORPORATION-2015IN001170

PATIENT
  Age: 75 Year
  Sex: Female
  Weight: 48.98 kg

DRUGS (24)
  1. JAKAFI [Suspect]
     Active Substance: RUXOLITINIB
     Dosage: 15 MG, QD
     Route: 048
  2. JAKAFI [Suspect]
     Active Substance: RUXOLITINIB
     Dosage: 7.5 MG, 5 MG BID
     Route: 048
     Dates: start: 20150317
  3. CLOBETASOL [Concomitant]
     Active Substance: CLOBETASOL
  4. JAKAFI [Suspect]
     Active Substance: RUXOLITINIB
     Dosage: 7.5 MG, QD
     Route: 048
  5. MAGNESIUM [Concomitant]
     Active Substance: MAGNESIUM
  6. LIPITOR [Concomitant]
     Active Substance: ATORVASTATIN CALCIUM
  7. VITAMIN D                          /00107901/ [Concomitant]
     Active Substance: ERGOCALCIFEROL
  8. BROMELAIN [Concomitant]
     Active Substance: BROMELAINS
  9. COENZYME Q10 [Concomitant]
     Active Substance: UBIDECARENONE
  10. MULTIVITAMIN                       /00097801/ [Concomitant]
     Active Substance: VITAMINS
  11. QUERCETIN [Concomitant]
     Active Substance: QUERCETIN
  12. JAKAFI [Suspect]
     Active Substance: RUXOLITINIB
     Indication: MYELOFIBROSIS
     Dosage: 30 MG, QD
     Route: 048
     Dates: start: 201303
  13. DANAZOL. [Concomitant]
     Active Substance: DANAZOL
     Dosage: 200 MG 2X
  14. LORAZEPAM. [Concomitant]
     Active Substance: LORAZEPAM
  15. JAKAFI [Suspect]
     Active Substance: RUXOLITINIB
     Dosage: 5 MG
     Route: 048
     Dates: start: 20150214
  16. JAKAFI [Suspect]
     Active Substance: RUXOLITINIB
     Dosage: 7.5 MG, QD
     Route: 048
     Dates: start: 20150310
  17. ZINC [Concomitant]
     Active Substance: ZINC\ZINC CHLORIDE
  18. JAKAFI [Suspect]
     Active Substance: RUXOLITINIB
     Dosage: 7.5 MG
     Route: 048
     Dates: end: 20150114
  19. TRIAMCINOLONE [Concomitant]
     Active Substance: TRIAMCINOLONE
  20. VITAMIN C [Concomitant]
     Active Substance: ASCORBIC ACID
  21. GABAPENTIN. [Concomitant]
     Active Substance: GABAPENTIN
     Dosage: 100 MG 3 DAILY
  22. JAKAFI [Suspect]
     Active Substance: RUXOLITINIB
     Dosage: 20 MG, QD
     Route: 048
     Dates: start: 20130320, end: 20150417
  23. JAKAFI [Suspect]
     Active Substance: RUXOLITINIB
     Dosage: 5 MG
     Route: 048
  24. CALCIUM [Concomitant]
     Active Substance: CALCIUM

REACTIONS (6)
  - Haemoglobin decreased [Recovered/Resolved]
  - Fatigue [Recovered/Resolved]
  - Throat irritation [Recovered/Resolved]
  - Red blood cell count decreased [Recovered/Resolved]
  - White blood cell count increased [Recovered/Resolved]
  - Haematocrit decreased [Recovered/Resolved]

NARRATIVE: CASE EVENT DATE: 20130329
